FAERS Safety Report 18632402 (Version 1)
Quarter: 2020Q4

REPORT INFORMATION
  Report Type: Spontaneous
  Country: CN (occurrence: CN)
  Receive Date: 20201218
  Receipt Date: 20201218
  Transmission Date: 20210114
  Serious: Yes (Hospitalization)
  Sender: FDA-Public Use
  Company Number: CN-LUPIN PHARMACEUTICALS INC.-2020-10401

PATIENT
  Age: 75 Year
  Sex: Male

DRUGS (6)
  1. CLOFAZIMINE [Concomitant]
     Active Substance: CLOFAZIMINE
     Indication: LEPROMATOUS LEPROSY
     Dosage: 50 MILLIGRAM, QD
     Route: 065
     Dates: start: 2018
  2. RIFAMPIN. [Suspect]
     Active Substance: RIFAMPIN
     Indication: BORDERLINE LEPROSY
  3. CLOFAZIMINE [Concomitant]
     Active Substance: CLOFAZIMINE
     Indication: BORDERLINE LEPROSY
     Dosage: 300 MILLIGRAM
     Route: 065
     Dates: start: 2018
  4. RIFAMPIN. [Suspect]
     Active Substance: RIFAMPIN
     Indication: LEPROMATOUS LEPROSY
     Dosage: 600 MILLIGRAM
     Route: 065
     Dates: start: 2018
  5. DAPSONE. [Concomitant]
     Active Substance: DAPSONE
     Indication: BORDERLINE LEPROSY
     Dosage: 100 MILLIGRAM, QD
     Route: 065
     Dates: start: 2018
  6. DAPSONE. [Concomitant]
     Active Substance: DAPSONE
     Indication: LEPROMATOUS LEPROSY

REACTIONS (1)
  - Thrombocytopenic purpura [Recovered/Resolved]
